FAERS Safety Report 20128460 (Version 1)
Quarter: 2021Q4

REPORT INFORMATION
  Report Type: Spontaneous
  Country: US (occurrence: US)
  Receive Date: 20211130
  Receipt Date: 20211130
  Transmission Date: 20220304
  Serious: No
  Sender: FDA-Public Use
  Company Number: US-JNJFOC-20211133927

PATIENT
  Sex: Female

DRUGS (1)
  1. XARELTO [Suspect]
     Active Substance: RIVAROXABAN
     Indication: Thrombosis
     Route: 048

REACTIONS (5)
  - Gingival bleeding [Unknown]
  - Incorrect dose administered [Unknown]
  - Off label use [Unknown]
  - Pain in extremity [Unknown]
  - Swelling [Unknown]
